FAERS Safety Report 4756091-1 (Version None)
Quarter: 2005Q3

REPORT INFORMATION
  Report Type: 
  Country: None (occurrence: None)
  Receive Date: 20050829
  Receipt Date: 20050829
  Transmission Date: 20060218
  Serious: Yes (Disabling)
  Sender: FDA-Public Use
  Company Number: None

PATIENT
  Age: 37 Year
  Sex: Female
  Weight: 59.8748 kg

DRUGS (1)
  1. PROZAC [Suspect]
     Indication: DEPRESSION
     Dosage: 20 MG ONCE A DAY PO
     Route: 048
     Dates: start: 19921001, end: 19951001

REACTIONS (9)
  - ANORGASMIA [None]
  - FEELING OF BODY TEMPERATURE CHANGE [None]
  - FEMALE ORGASMIC DISORDER [None]
  - FEMALE SEXUAL AROUSAL DISORDER [None]
  - FLUSHING [None]
  - GENITAL DISORDER FEMALE [None]
  - HYPOAESTHESIA [None]
  - LOSS OF LIBIDO [None]
  - SLEEP DISORDER [None]
